FAERS Safety Report 6292148-4 (Version None)
Quarter: 2009Q3

REPORT INFORMATION
  Report Type: 
  Country: None (occurrence: None)
  Receive Date: 20090730
  Receipt Date: 20090730
  Transmission Date: 20100115
  Serious: Yes (Hospitalization)
  Sender: FDA-Public Use
  Company Number: None

PATIENT
  Age: 44 Year
  Sex: Female
  Weight: 52.1637 kg

DRUGS (3)
  1. ZOLPIDEM TARTRATE [Suspect]
     Indication: INSOMNIA
     Dosage: 20 MG AT BEDTIME PO
     Route: 048
     Dates: start: 20080101, end: 20090717
  2. ZOLOFT [Concomitant]
  3. LAMICTAL [Concomitant]

REACTIONS (4)
  - ALCOHOL USE [None]
  - AMNESIA [None]
  - OVERDOSE [None]
  - POISONING [None]
